FAERS Safety Report 9657395 (Version 1)
Quarter: 2013Q4

REPORT INFORMATION
  Report Type: Spontaneous
  Country: IT (occurrence: IT)
  Receive Date: 20131030
  Receipt Date: 20131030
  Transmission Date: 20140711
  Serious: Yes (Other)
  Sender: FDA-Public Use
  Company Number: IT-PFIZER INC-2013309292

PATIENT
  Age: 88 Year
  Sex: Female

DRUGS (6)
  1. CORDARONE [Suspect]
     Indication: CARDIAC VALVE DISEASE
     Dosage: 200 MG, 1X/DAY
     Route: 048
     Dates: start: 20130101, end: 20130908
  2. LASIX [Suspect]
     Indication: HYPERTENSION
     Dosage: 25 MG, 1X/DAY
     Route: 048
     Dates: start: 20130101, end: 20130908
  3. SIVASTIN [Concomitant]
     Dosage: UNK
  4. CLEXANE [Concomitant]
     Dosage: UNK
  5. ASA [Concomitant]
     Dosage: UNK
  6. TRENTAL [Concomitant]
     Dosage: UNK

REACTIONS (3)
  - Atrial fibrillation [Recovering/Resolving]
  - Dyspnoea [Recovering/Resolving]
  - Hypokalaemia [Recovering/Resolving]
